FAERS Safety Report 9752598 (Version 2)
Quarter: 2013Q4

REPORT INFORMATION
  Report Type: Report from Study
  Country: DE (occurrence: DE)
  Receive Date: 20131213
  Receipt Date: 20131213
  Transmission Date: 20140711
  Serious: Yes (Other)
  Sender: FDA-Public Use
  Company Number: DE-BEH-2013037840

PATIENT
  Age: 84 Year
  Sex: Male
  Weight: 80.5 kg

DRUGS (7)
  1. PRIVIGEN [Suspect]
     Indication: IMMUNODEFICIENCY
     Dosage: DAILY DOSE: 10 G /100 ML, INFUSION RATE: 2-3 ML/MIN
     Route: 042
     Dates: start: 20130610, end: 20130610
  2. CLEXANE [Concomitant]
  3. TORASEMIDE [Concomitant]
  4. SPIRIVA [Concomitant]
  5. THEOPHYLIN [Concomitant]
  6. SALBUTAMOL [Concomitant]
     Dosage: 200 H
  7. CORTICOID [Concomitant]

REACTIONS (6)
  - Bronchitis [Recovering/Resolving]
  - Productive cough [Recovered/Resolved]
  - Sputum discoloured [Recovered/Resolved]
  - Bronchospasm [Recovered/Resolved]
  - Muscular weakness [Recovered/Resolved]
  - Local swelling [Recovered/Resolved]
